FAERS Safety Report 9795764 (Version 1)
Quarter: 2014Q1

REPORT INFORMATION
  Report Type: Spontaneous
  Country: US (occurrence: US)
  Receive Date: 20140103
  Receipt Date: 20140103
  Transmission Date: 20141002
  Serious: No
  Sender: FDA-Public Use
  Company Number: US-TEVA-451634USA

PATIENT
  Age: 39 Year
  Sex: Female
  Weight: 61.74 kg

DRUGS (1)
  1. PARAGARD 380A [Suspect]
     Indication: CONTRACEPTION
     Dates: start: 20131031, end: 20131107

REACTIONS (2)
  - Device expulsion [Recovered/Resolved]
  - Pain [Recovered/Resolved]
